FAERS Safety Report 8375760-8 (Version None)
Quarter: 2012Q2

REPORT INFORMATION
  Report Type: 
  Country: None (occurrence: None)
  Receive Date: 20120518
  Receipt Date: 20120518
  Transmission Date: 20120825
  Serious: Yes (Hospitalization)
  Sender: FDA-Public Use
  Company Number: None

PATIENT
  Sex: Female
  Weight: 113.6 kg

DRUGS (13)
  1. GLEEVEC [Concomitant]
  2. CELEXA [Concomitant]
  3. LASIX [Concomitant]
  4. NITROSTAT [Concomitant]
  5. PRADAXA [Concomitant]
  6. PERCOCET [Concomitant]
  7. SPRYCEL [Suspect]
     Indication: CHRONIC MYELOID LEUKAEMIA
     Dosage: 100MG QDAY PO
     Route: 048
     Dates: start: 20110815, end: 20111014
  8. POTASSIUM CHLORIDE [Concomitant]
  9. MIRALAX [Concomitant]
  10. CARDIZEM LA [Concomitant]
  11. SPRIRIVA [Concomitant]
  12. TYLENOL [Concomitant]
  13. PROTONIX [Concomitant]

REACTIONS (1)
  - HAEMORRHAGE [None]
